APPROVED DRUG PRODUCT: HYDROCORTISONE AND ACETIC ACID
Active Ingredient: ACETIC ACID, GLACIAL; HYDROCORTISONE
Strength: 2%;1%
Dosage Form/Route: SOLUTION/DROPS;OTIC
Application: A040097 | Product #001
Applicant: BAUSCH AND LOMB PHARMACEUTICALS INC
Approved: Oct 31, 1994 | RLD: No | RS: No | Type: DISCN